FAERS Safety Report 15687384 (Version 6)
Quarter: 2022Q3

REPORT INFORMATION
  Report Type: Report from Study
  Country: IL (occurrence: None)
  Receive Date: 20181205
  Receipt Date: 20220725
  Transmission Date: 20221026
  Serious: Yes (Hospitalization)
  Sender: FDA-Public Use
  Company Number: IL-ROCHE-2221789

PATIENT
  Age: 41 Year
  Sex: Female
  Weight: 68 kg

DRUGS (21)
  1. ATEZOLIZUMAB [Suspect]
     Active Substance: ATEZOLIZUMAB
     Indication: Ovarian cancer
     Dosage: DATE OF MOST RECENT DOSE OF ATEZOLIZUMAB/PLACEBO PRIOR TO AE ONSET: 13/NOV/2018
     Route: 041
     Dates: start: 20181113
  2. PACLITAXEL [Suspect]
     Active Substance: PACLITAXEL
     Indication: Ovarian cancer
     Dosage: DOSE OF LAST DOSE (300 MG) PACLITAXEL ADMINISTERED PRIOR TO SAE ONSET: 13/NOV/2018
     Route: 042
     Dates: start: 20181113
  3. CARBOPLATIN [Suspect]
     Active Substance: CARBOPLATIN
     Indication: Ovarian cancer
     Dosage: DATE OF MOST RECENT DOSE (840 MG) OF CARBOPLATIN PRIOR TO SAE ONSET: 13/NOV/2018
     Route: 042
     Dates: start: 20181113
  4. RECTOZORIN OINTMENT [Concomitant]
     Indication: Haemorrhoids
     Dates: start: 2000
  5. ENOXAPARIN SODIUM [Concomitant]
     Active Substance: ENOXAPARIN SODIUM
     Indication: Prophylaxis
     Dates: start: 20181023, end: 20181108
  6. ENOXAPARIN SODIUM [Concomitant]
     Active Substance: ENOXAPARIN SODIUM
     Dates: start: 20181109, end: 20181123
  7. CIPRALEX [Concomitant]
     Active Substance: ESCITALOPRAM OXALATE
     Indication: Anxiety
     Dates: start: 20181018
  8. AUGMENTIN [Concomitant]
     Active Substance: AMOXICILLIN\CLAVULANATE POTASSIUM
     Indication: Leukocytosis
     Dates: start: 20181023, end: 20181029
  9. NALOXONE HYDROCHLORIDE\OXYCODONE HYDROCHLORIDE [Concomitant]
     Active Substance: NALOXONE HYDROCHLORIDE\OXYCODONE HYDROCHLORIDE
     Dates: start: 20181018, end: 20181230
  10. BROTIZOLAM [Concomitant]
     Active Substance: BROTIZOLAM
     Indication: Sleep disorder
     Dates: start: 20181018
  11. NYSTATIN [Concomitant]
     Active Substance: NYSTATIN
     Indication: Stomatitis
     Dates: start: 20181128, end: 20181128
  12. LORATADINE [Concomitant]
     Active Substance: LORATADINE
     Indication: Rash
     Dates: start: 20181128, end: 20181129
  13. FERRIC PYROPHOSPHATE [Concomitant]
     Active Substance: FERRIC PYROPHOSPHATE
     Indication: Nutritional supplementation
     Dates: start: 20181127
  14. ARNICA MONTANA FLOWER [Concomitant]
     Active Substance: ARNICA MONTANA FLOWER
     Dates: start: 20181101
  15. ORACORT E [Concomitant]
     Indication: Stomatitis
     Dates: start: 20181125
  16. AVILAC [Concomitant]
     Indication: Prophylaxis
     Dates: start: 20181018
  17. LORATADINE [Concomitant]
     Active Substance: LORATADINE
     Indication: Rash
     Dates: start: 20181128, end: 20181129
  18. MICROLET ENEMA [Concomitant]
     Indication: Constipation
     Dates: start: 20181113
  19. DEXAMETHASONE [Concomitant]
     Active Substance: DEXAMETHASONE
     Indication: Chemotherapy side effect prophylaxis
     Route: 042
     Dates: start: 20181113, end: 20190304
  20. ZANTAC [Concomitant]
     Active Substance: RANITIDINE HYDROCHLORIDE
     Indication: Chemotherapy side effect prophylaxis
     Dates: start: 20181113, end: 20190304
  21. AKYNZEO [Concomitant]
     Indication: Chemotherapy side effect prophylaxis
     Dates: start: 20181113, end: 20190304

REACTIONS (1)
  - Febrile neutropenia [Recovered/Resolved]

NARRATIVE: CASE EVENT DATE: 20181126
